FAERS Safety Report 18308154 (Version 2)
Quarter: 2021Q1

REPORT INFORMATION
  Report Type: Report from Study
  Country: None (occurrence: US)
  Receive Date: 20200924
  Receipt Date: 20210224
  Transmission Date: 20210419
  Serious: Yes (Hospitalization)
  Sender: FDA-Public Use
  Company Number: US-ABBVIE-20K-163-3572715-00

PATIENT
  Age: 49 Year
  Sex: Female
  Weight: 81.72 kg

DRUGS (2)
  1. SKYRIZI [Suspect]
     Active Substance: RISANKIZUMAB-RZAA
     Indication: PSORIASIS
     Route: 058
     Dates: start: 20190306
  2. SKYRIZI [Suspect]
     Active Substance: RISANKIZUMAB-RZAA
     Dosage: JAN 2020 OR FEB 2020
     Route: 058
     Dates: start: 2020

REACTIONS (8)
  - Suspected COVID-19 [Recovering/Resolving]
  - Fatigue [Recovering/Resolving]
  - Pneumonia [Recovered/Resolved]
  - SARS-CoV-2 test negative [Recovering/Resolving]
  - Ageusia [Recovered/Resolved]
  - White blood cell count increased [Recovered/Resolved]
  - Anosmia [Recovered/Resolved]
  - Atelectasis [Recovered/Resolved]

NARRATIVE: CASE EVENT DATE: 2020
